FAERS Safety Report 9503755 (Version 1)
Quarter: 2013Q1

REPORT INFORMATION
  Report Type: Spontaneous
  Country: US (occurrence: None)
  Receive Date: 20130225
  Receipt Date: 20130225
  Transmission Date: 20140127
  Serious: No
  Sender: FDA-Public Use
  Company Number: 366147

PATIENT
  Age: 59 Year
  Sex: Female

DRUGS (1)
  1. VICTOZA [Suspect]
     Indication: TYPE 2 DIABETES MELLITUS
     Dosage: 1.2 QD, SUBCUTANEOUS
     Route: 058
     Dates: start: 201201, end: 20121101

REACTIONS (6)
  - Hyperhidrosis [None]
  - Tremor [None]
  - Asthenia [None]
  - Somnolence [None]
  - Heart rate increased [None]
  - Malaise [None]
